FAERS Safety Report 6330519-8 (Version None)
Quarter: 2009Q3

REPORT INFORMATION
  Report Type: 
  Country: None (occurrence: None)
  Receive Date: 20090827
  Receipt Date: 20090309
  Transmission Date: 20100115
  Serious: No
  Sender: FDA-Public Use
  Company Number: A0772930A

PATIENT
  Sex: Female

DRUGS (1)
  1. ZOVIRAX [Suspect]
     Indication: IMMUNOSUPPRESSANT DRUG THERAPY
     Dosage: 400MG TWICE PER DAY
     Route: 048
     Dates: start: 20090201

REACTIONS (3)
  - ABDOMINAL PAIN UPPER [None]
  - COELIAC DISEASE [None]
  - DIARRHOEA [None]
